FAERS Safety Report 23671409 (Version 1)
Quarter: 2024Q1

REPORT INFORMATION
  Report Type: Spontaneous
  Country: CN (occurrence: CN)
  Receive Date: 20240326
  Receipt Date: 20240326
  Transmission Date: 20240409
  Serious: Yes (Other)
  Sender: FDA-Public Use
  Company Number: CN-UCBSA-2024013067

PATIENT
  Age: 48 Year
  Sex: Male
  Weight: 62.5 kg

DRUGS (2)
  1. KEPPRA [Suspect]
     Active Substance: LEVETIRACETAM
     Indication: Epilepsy
     Dosage: 0.25 GRAM, 2X/DAY (BID) IN THE MORNING AND EVENING
     Route: 048
     Dates: start: 2019, end: 2023
  2. KEPPRA [Suspect]
     Active Substance: LEVETIRACETAM
     Dosage: 0.25 GRAM, 2X/DAY (BID)
     Route: 048
     Dates: start: 2023, end: 2024

REACTIONS (2)
  - Seizure [Recovered/Resolved]
  - Therapeutic product ineffective [Unknown]

NARRATIVE: CASE EVENT DATE: 20230101
